FAERS Safety Report 8009934-2 (Version None)
Quarter: 2011Q4

REPORT INFORMATION
  Report Type: 
  Country: None (occurrence: None)
  Receive Date: 20111228
  Receipt Date: 20111219
  Transmission Date: 20120403
  Serious: Yes (Other)
  Sender: FDA-Public Use
  Company Number: PHHY2011AR111294

PATIENT
  Sex: Female

DRUGS (1)
  1. DIOVAN HCT [Suspect]
     Indication: HYPERTENSION
     Dosage: 1 DF(160 MG OF VALS AND UNKNOWN HYDRO), DAILY

REACTIONS (4)
  - PAIN [None]
  - FALL [None]
  - SPINAL COLUMN INJURY [None]
  - SPINAL FRACTURE [None]
